FAERS Safety Report 7588858-9 (Version None)
Quarter: 2011Q3

REPORT INFORMATION
  Report Type: 
  Country: None (occurrence: None)
  Receive Date: 20110705
  Receipt Date: 20110620
  Transmission Date: 20111222
  Serious: Yes (Hospitalization, Disabling)
  Sender: FDA-Public Use
  Company Number: JP-TEVA-272209ISR

PATIENT
  Sex: Male
  Weight: 58 kg

DRUGS (6)
  1. DEXAMETHASONE SODIUM PHOSPHATE [Concomitant]
     Dates: start: 20101018, end: 20110106
  2. CISPLATIN [Suspect]
     Indication: SMALL CELL LUNG CANCER STAGE UNSPECIFIED
     Dosage: 90MG/BODY CYCLIC
     Route: 041
     Dates: start: 20101018, end: 20110104
  3. APREPITANT [Concomitant]
     Dates: start: 20101018, end: 20110106
  4. IRINOTECAN HCL [Suspect]
     Indication: SMALL CELL LUNG CANCER STAGE UNSPECIFIED
     Dosage: 90MG/BODY CYCLIC
     Route: 041
     Dates: start: 20101018, end: 20110118
  5. RAMOSETRON HYDROCHLORIDE [Concomitant]
     Dates: start: 20101026, end: 20110118
  6. PALONOSETRON HYDROCHLORIDE [Concomitant]
     Dates: start: 20101018, end: 20110104

REACTIONS (1)
  - INTERSTITIAL LUNG DISEASE [None]
